FAERS Safety Report 21904374 (Version 2)
Quarter: 2023Q2

REPORT INFORMATION
  Report Type: Spontaneous
  Country: US (occurrence: US)
  Receive Date: 20230124
  Receipt Date: 20230418
  Transmission Date: 20230721
  Serious: No
  Sender: FDA-Public Use
  Company Number: US-LUPIN PHARMACEUTICALS INC.-2023-00472

PATIENT

DRUGS (2)
  1. QUINAPRIL [Suspect]
     Active Substance: QUINAPRIL
     Indication: Product used for unknown indication
     Dosage: UNK, FROM 20 YEARS
     Route: 065
  2. QUINAPRIL [Suspect]
     Active Substance: QUINAPRIL
     Dosage: UNK
     Route: 065

REACTIONS (6)
  - Recalled product administered [Unknown]
  - Abdominal discomfort [Unknown]
  - Abdominal pain upper [Unknown]
  - Nausea [Unknown]
  - Illness [Unknown]
  - Vomiting [Unknown]
